FAERS Safety Report 6903293-1 (Version None)
Quarter: 2010Q3

REPORT INFORMATION
  Report Type: 
  Country: None (occurrence: None)
  Receive Date: 20100803
  Receipt Date: 20080828
  Transmission Date: 20110219
  Serious: No
  Sender: FDA-Public Use
  Company Number: US-PFIZER INC-2008073202

PATIENT
  Sex: Female
  Weight: 69.4 kg

DRUGS (9)
  1. LYRICA [Suspect]
     Indication: PAIN
     Dates: start: 20080827, end: 20080828
  2. PHENOBARBITAL [Concomitant]
  3. FOSAMAX [Concomitant]
  4. TRIMETHOPRIM [Concomitant]
  5. LISINOPRIL [Concomitant]
  6. TRICOR [Concomitant]
  7. VITAMIN TAB [Concomitant]
  8. LOVAZA [Concomitant]
  9. CALCIUM WITH VITAMIN D [Concomitant]

REACTIONS (3)
  - DISORIENTATION [None]
  - DIZZINESS [None]
  - GAIT DISTURBANCE [None]
